FAERS Safety Report 8037995-3 (Version None)
Quarter: 2012Q1

REPORT INFORMATION
  Report Type: 
  Country: None (occurrence: None)
  Receive Date: 20120111
  Receipt Date: 20120105
  Transmission Date: 20120608
  Serious: Yes (Other)
  Sender: FDA-Public Use
  Company Number: BR-PFIZER INC-2012003209

PATIENT
  Age: 81 Year
  Sex: Female

DRUGS (3)
  1. ATENOLOL [Concomitant]
     Indication: CARDIAC DISORDER
     Dosage: 1 TABLET DAILY
  2. XALATAN [Suspect]
     Indication: CATARACT
     Dosage: 3 UG (1 DROP EACH EYE) 1X/DAY
     Route: 047
     Dates: start: 20050105
  3. PENTOX [Concomitant]
     Indication: CARDIOVASCULAR DISORDER
     Dosage: 2 TABLETS DAILY

REACTIONS (1)
  - CATARACT [None]
